FAERS Safety Report 8516951 (Version 3)
Quarter: 2012Q4

REPORT INFORMATION
  Report Type: 
  Country: US (occurrence: US)
  Receive Date: 20120417
  Receipt Date: 20121227
  Transmission Date: 20130627
  Serious: Yes (Hospitalization)
  Sender: FDA-Public Use
  Company Number: US-BAYER-2012-035376

PATIENT
  Age: 33 Year
  Sex: Female
  Weight: 102.95 kg

DRUGS (8)
  1. YASMIN [Suspect]
     Indication: CONTRACEPTION
     Dosage: UNK
     Dates: start: 20021212, end: 20030324
  2. YASMIN [Suspect]
     Indication: MENSTRUAL CYCLE MANAGEMENT
  3. YASMIN [Suspect]
     Indication: POLYCYSTIC OVARIAN SYNDROME
  4. LISINOPRIL [Concomitant]
     Indication: HYPERTENSION
     Dosage: 1 daily
  5. TRIAMTERENE AND HYDROCHLOROTHIAZIDE [Concomitant]
     Indication: HYPERTENSION
     Dosage: 1 daily
  6. METFORMIN [Concomitant]
     Indication: POLYCYSTIC OVARIAN SYNDROME
     Dosage: 1 daily
  7. HYDROCHLOROTHIAZIDE [Concomitant]
  8. MULTIVITAMINS WITH IRON [VIT C,B12,D2,B3,P+,B6,RETINOL,B2,B1 HCL,V [Concomitant]

REACTIONS (12)
  - Pulmonary embolism [None]
  - Myocardial infarction [None]
  - Pain [None]
  - General physical health deterioration [None]
  - Emotional distress [None]
  - Anxiety [None]
  - Dyspnoea [None]
  - Abdominal discomfort [None]
  - Blood pressure decreased [None]
  - Tachycardia [None]
  - Loss of consciousness [None]
  - Injury [None]
